FAERS Safety Report 6891834-2 (Version None)
Quarter: 2010Q3

REPORT INFORMATION
  Report Type: 
  Country: None (occurrence: None)
  Receive Date: 20100731
  Receipt Date: 20071009
  Transmission Date: 20110219
  Serious: No
  Sender: FDA-Public Use
  Company Number: US-PFIZER INC-2007084950

PATIENT
  Sex: Female
  Weight: 72.7 kg

DRUGS (1)
  1. NORVASC [Suspect]
     Indication: BLOOD PRESSURE
     Dates: start: 20070801, end: 20070901

REACTIONS (2)
  - HEADACHE [None]
  - VOMITING [None]
